FAERS Safety Report 7943189-X (Version None)
Quarter: 2011Q4

REPORT INFORMATION
  Report Type: 
  Country: None (occurrence: None)
  Receive Date: 20111128
  Receipt Date: 20100816
  Transmission Date: 20120403
  Serious: Yes (Death, Other)
  Sender: FDA-Public Use
  Company Number: PHHY2010TW66103

PATIENT
  Sex: Male

DRUGS (1)
  1. GLEEVEC [Suspect]
     Indication: GASTROINTESTINAL STROMAL TUMOUR
     Dosage: 400 MG, UNK
     Route: 048
     Dates: start: 20100809

REACTIONS (5)
  - GASTROINTESTINAL STROMAL TUMOUR [None]
  - OEDEMA PERIPHERAL [None]
  - NEOPLASM MALIGNANT [None]
  - DEATH [None]
  - NAUSEA [None]
